FAERS Safety Report 18411940 (Version 1)
Quarter: 2020Q4

REPORT INFORMATION
  Report Type: Report from Study
  Country: BR (occurrence: BR)
  Receive Date: 20201021
  Receipt Date: 20201021
  Transmission Date: 20210114
  Serious: Yes (Death)
  Sender: FDA-Public Use
  Company Number: BR-JNJFOC-20200939965

PATIENT
  Age: 37 Year
  Sex: Male
  Weight: 130 kg

DRUGS (8)
  1. METHYLPREDNISOLONE. [Concomitant]
     Active Substance: METHYLPREDNISOLONE
     Indication: ANTIINFLAMMATORY THERAPY
     Dosage: 125 MG
     Route: 042
     Dates: start: 20200912, end: 20200915
  2. REMIFENTANIL [Concomitant]
     Active Substance: REMIFENTANIL
     Indication: SEDATION
     Dosage: 0.3 UG/KG
     Route: 042
     Dates: start: 20200912, end: 20200915
  3. ROCURONIUM [Concomitant]
     Active Substance: ROCURONIUM BROMIDE
     Indication: SEDATION
     Dosage: 0.3 UG/KG, QD
     Route: 042
     Dates: start: 20200912, end: 20200915
  4. MEROPENEM. [Concomitant]
     Active Substance: MEROPENEM
     Indication: ANTIBIOTIC THERAPY
     Dosage: 4 G, QD
     Route: 042
     Dates: start: 20200915, end: 20200915
  5. RIVAROXABAN [Suspect]
     Active Substance: RIVAROXABAN
     Indication: CORONAVIRUS INFECTION
     Dosage: 20 MG, ONCE
     Route: 048
     Dates: start: 20200908, end: 20200914
  6. NOREPINEPHRINE. [Concomitant]
     Active Substance: NOREPINEPHRINE
     Indication: HYPOTENSION
     Dosage: 0.508 MG/KG
     Route: 042
     Dates: start: 20200912, end: 20200915
  7. RIVAROXABAN [Suspect]
     Active Substance: RIVAROXABAN
     Indication: ANTICOAGULANT THERAPY
  8. MIDAZOLAM. [Concomitant]
     Active Substance: MIDAZOLAM
     Indication: SEDATION
     Dosage: 0.5 MG/KG, QD
     Route: 042
     Dates: start: 20200912, end: 20200915

REACTIONS (1)
  - Death [Fatal]
